FAERS Safety Report 25612755 (Version 1)
Quarter: 2025Q3

REPORT INFORMATION
  Report Type: Spontaneous
  Country: US (occurrence: US)
  Receive Date: 20250728
  Receipt Date: 20250728
  Transmission Date: 20251021
  Serious: Yes (Life-Threatening, Other)
  Sender: PFIZER
  Company Number: US-PFIZER INC-PV202500088858

PATIENT
  Sex: Male

DRUGS (12)
  1. METHOTREXATE SODIUM [Suspect]
     Active Substance: METHOTREXATE SODIUM
     Indication: Acute monocytic leukaemia
     Dosage: UNK, WEEKLY (FOUR WEEKLY DOSES)
     Route: 037
     Dates: start: 197506, end: 1976
  2. METHOTREXATE SODIUM [Suspect]
     Active Substance: METHOTREXATE SODIUM
     Route: 037
     Dates: start: 197510
  3. METHOTREXATE SODIUM [Suspect]
     Active Substance: METHOTREXATE SODIUM
     Indication: Acute monocytic leukaemia
     Dates: start: 197506, end: 1976
  4. MERCAPTOPURINE [Suspect]
     Active Substance: MERCAPTOPURINE
     Indication: Acute monocytic leukaemia
     Dates: start: 197506, end: 1976
  5. PREDNISONE [Suspect]
     Active Substance: PREDNISONE
     Indication: Acute monocytic leukaemia
     Dates: start: 197506, end: 1976
  6. VINCRISTINE [Suspect]
     Active Substance: VINCRISTINE
     Indication: Acute monocytic leukaemia
     Dates: start: 197506, end: 1976
  7. CYCLOPHOSPHAMIDE [Suspect]
     Active Substance: CYCLOPHOSPHAMIDE
     Indication: Acute monocytic leukaemia
     Dates: start: 197506, end: 1976
  8. DAUNORUBICIN [Suspect]
     Active Substance: DAUNORUBICIN
     Indication: Acute monocytic leukaemia
     Dates: start: 197510, end: 1976
  9. CYTARABINE [Suspect]
     Active Substance: CYTARABINE
     Indication: Acute monocytic leukaemia
     Dates: start: 197510, end: 1976
  10. CYTARABINE [Suspect]
     Active Substance: CYTARABINE
     Dates: start: 197510
  11. ETOPOSIDE [Suspect]
     Active Substance: ETOPOSIDE
     Indication: Acute monocytic leukaemia
     Dates: start: 197510, end: 1976
  12. ETOPOSIDE [Concomitant]
     Active Substance: ETOPOSIDE
     Indication: Acute monocytic leukaemia
     Dates: start: 197509, end: 1976

REACTIONS (1)
  - Drug ineffective [Unknown]

NARRATIVE: CASE EVENT DATE: 19750601
